FAERS Safety Report 5956347-0 (Version None)
Quarter: 2008Q4

REPORT INFORMATION
  Report Type: 
  Country: None (occurrence: None)
  Receive Date: 20081118
  Receipt Date: 20081104
  Transmission Date: 20090506
  Serious: Yes (Other)
  Sender: FDA-Public Use
  Company Number: US-ELI_LILLY_AND_COMPANY-US200804000215

PATIENT
  Sex: Female
  Weight: 78.912 kg

DRUGS (13)
  1. CYMBALTA [Suspect]
     Indication: DEPRESSION
     Dosage: 60 MG, DAILY (1/D)
  2. CYMBALTA [Suspect]
     Dosage: 120 MG, DAILY (1/D)
  3. STRATTERA [Suspect]
     Dosage: 60 MG, UNK
     Dates: start: 20080310, end: 20080320
  4. LORAZEPAM [Concomitant]
     Indication: ANXIETY
     Dosage: 0.5 MG, 2/D
     Dates: end: 20080601
  5. LORAZEPAM [Concomitant]
     Dosage: 1 MG, EACH EVENING
  6. LORAZEPAM [Concomitant]
     Dosage: 1 MG, 2/D
     Dates: start: 20080601, end: 20080820
  7. LORAZEPAM [Concomitant]
     Dosage: 1 MG, 3/D
     Dates: start: 20080820
  8. AMBIEN [Concomitant]
     Indication: SLEEP DISORDER
     Dosage: 5 MG, EACH EVENING
     Dates: end: 20080601
  9. AMBIEN [Concomitant]
     Dosage: 10 MG, EACH EVENING
     Dates: start: 20080601
  10. DEXAMETHASONE TAB [Concomitant]
     Dosage: 1 MG, DAILY (1/D)
     Dates: start: 20080915, end: 20080915
  11. LUPRON [Concomitant]
     Indication: ENDOMETRIOSIS
  12. YASMIN [Concomitant]
     Indication: ENDOMETRIOSIS
  13. LEXAPRO [Concomitant]

REACTIONS (44)
  - AKATHISIA [None]
  - AMNESIA [None]
  - ANOREXIA [None]
  - ANXIETY [None]
  - ASTHENIA [None]
  - BLINDNESS [None]
  - BLOOD CORTISOL DECREASED [None]
  - BREAST MASS [None]
  - COGNITIVE DISORDER [None]
  - CONSTIPATION [None]
  - CONVULSION [None]
  - CRYING [None]
  - DIZZINESS [None]
  - DYSPEPSIA [None]
  - DYSPHAGIA [None]
  - FATIGUE [None]
  - FEELING ABNORMAL [None]
  - GLUCOSE TOLERANCE IMPAIRED [None]
  - HEADACHE [None]
  - HEPATIC CYST [None]
  - HYPERLIPIDAEMIA [None]
  - HYPOAESTHESIA [None]
  - IRRITABILITY [None]
  - JOINT SPRAIN [None]
  - JOINT STIFFNESS [None]
  - LARYNGITIS [None]
  - LOSS OF CONSCIOUSNESS [None]
  - MALAISE [None]
  - MEDICATION ERROR [None]
  - NAUSEA [None]
  - NIGHT SWEATS [None]
  - PALPITATIONS [None]
  - PARAESTHESIA [None]
  - POST CONCUSSION SYNDROME [None]
  - REFLEXES ABNORMAL [None]
  - ROAD TRAFFIC ACCIDENT [None]
  - SOMNOLENCE [None]
  - SUICIDAL IDEATION [None]
  - UPPER RESPIRATORY TRACT INFECTION [None]
  - URINARY HESITATION [None]
  - URINARY RETENTION [None]
  - VISION BLURRED [None]
  - VOMITING [None]
  - WEIGHT INCREASED [None]
